FAERS Safety Report 8503794-9 (Version None)
Quarter: 2012Q3

REPORT INFORMATION
  Report Type: 
  Country: None (occurrence: None)
  Receive Date: 20120711
  Receipt Date: 20120702
  Transmission Date: 20120928
  Serious: Yes (Other)
  Sender: FDA-Public Use
  Company Number: DE-BRISTOL-MYERS SQUIBB COMPANY-16534943

PATIENT
  Age: 17 Year
  Sex: Male
  Weight: 58 kg

DRUGS (1)
  1. ABILIFY [Suspect]
     Indication: TOURETTE'S DISORDER
     Dosage: FIRST STARTED WITH 10MG THEN INCREASED TO 15MG THEN AGAIN REDUCED TO 10MG,ON 23APR12 15MG
     Route: 048
     Dates: start: 20120408

REACTIONS (2)
  - FEELING ABNORMAL [None]
  - EXTRAPYRAMIDAL DISORDER [None]
